FAERS Safety Report 7534536-1 (Version None)
Quarter: 2011Q2

REPORT INFORMATION
  Report Type: 
  Country: None (occurrence: None)
  Receive Date: 20110609
  Receipt Date: 20091005
  Transmission Date: 20111010
  Serious: Yes (Hospitalization, Other)
  Sender: FDA-Public Use
  Company Number: PHHY2009PL38061

PATIENT
  Sex: Female
  Weight: 58 kg

DRUGS (2)
  1. MYCOPHENOLIC ACID [Suspect]
     Indication: RENAL TRANSPLANT
     Dosage: 1440 MG, QD
     Route: 048
     Dates: start: 20090713
  2. ACARD [Concomitant]
     Indication: THROMBOSIS
     Dosage: 75 MG, UNK
     Dates: start: 20090715, end: 20090819

REACTIONS (6)
  - WOUND DEHISCENCE [None]
  - PYREXIA [None]
  - BLOOD CREATININE INCREASED [None]
  - POST PROCEDURAL HAEMATOMA [None]
  - COAGULOPATHY [None]
  - HYPONATRAEMIA [None]
